FAERS Safety Report 5117483-4 (Version None)
Quarter: 2006Q3

REPORT INFORMATION
  Report Type: 
  Country: None (occurrence: None)
  Receive Date: 20060929
  Receipt Date: 20060904
  Transmission Date: 20061208
  Serious: Yes (Death, Hospitalization)
  Sender: FDA-Public Use
  Company Number: HQWYE320305SEP06

PATIENT
  Sex: Male
  Weight: 55 kg

DRUGS (10)
  1. ENBREL [Suspect]
     Indication: RHEUMATOID ARTHRITIS
     Route: 058
     Dates: start: 20060104, end: 20060411
  2. METOLATE [Suspect]
     Indication: DRUG USE FOR UNKNOWN INDICATION
     Dosage: UNKNOWN
     Route: 048
     Dates: start: 20050922, end: 20060411
  3. PREDONINE [Suspect]
     Indication: RHEUMATOID ARTHRITIS
     Dosage: 45 MG/DAY TOTAL
     Route: 048
     Dates: end: 20060327
  4. PREDONINE [Suspect]
     Dosage: 180 MG/DAY TOTAL
     Route: 048
     Dates: start: 20060328, end: 20060412
  5. SULFASALAZINE [Concomitant]
     Route: 048
     Dates: start: 20041006, end: 20060411
  6. MS CONTIN [Concomitant]
     Route: 048
     Dates: start: 20051231, end: 20060412
  7. ONE-ALPHA [Concomitant]
     Indication: OSTEOPOROSIS
     Route: 048
     Dates: end: 20060412
  8. ISCOTIN [Concomitant]
     Indication: ANTIBIOTIC PROPHYLAXIS
     Route: 048
     Dates: end: 20060412
  9. LOXONIN [Concomitant]
     Indication: RHEUMATOID ARTHRITIS
     Route: 048
     Dates: end: 20060412
  10. ZANTAC [Concomitant]
     Route: 048
     Dates: end: 20060412

REACTIONS (4)
  - BLOOD LACTATE DEHYDROGENASE INCREASED [None]
  - PANCYTOPENIA [None]
  - PNEUMOCYSTIS JIROVECI PNEUMONIA [None]
  - SHOCK [None]
